FAERS Safety Report 8070730-1 (Version None)
Quarter: 2012Q1

REPORT INFORMATION
  Report Type: 
  Country: None (occurrence: None)
  Receive Date: 20120125
  Receipt Date: 20120123
  Transmission Date: 20120608
  Serious: Yes (Hospitalization)
  Sender: FDA-Public Use
  Company Number: US-JNJFOC-20120104589

PATIENT
  Sex: Male
  Weight: 76.2 kg

DRUGS (2)
  1. NUCYNTA ER [Suspect]
     Indication: PAIN
     Route: 048
     Dates: start: 20111201, end: 20120101
  2. PERCOCET [Concomitant]
     Indication: PAIN
     Dosage: 10/325MG
     Route: 048
     Dates: start: 20110101

REACTIONS (12)
  - FEELING COLD [None]
  - RESPIRATORY ARREST [None]
  - DRUG INEFFECTIVE [None]
  - HEADACHE [None]
  - PALPITATIONS [None]
  - LOSS OF CONSCIOUSNESS [None]
  - CONFUSIONAL STATE [None]
  - SENSORY DISTURBANCE [None]
  - HALLUCINATION [None]
  - FEELING HOT [None]
  - CONSCIOUSNESS FLUCTUATING [None]
  - DISORIENTATION [None]
